FAERS Safety Report 8842279 (Version 2)
Quarter: 2014Q2

REPORT INFORMATION
  Report Type: Spontaneous
  Country: US (occurrence: US)
  Receive Date: 20121016
  Receipt Date: 20131024
  Transmission Date: 20141212
  Serious: No
  Sender: FDA-Public Use
  Company Number: US-PFIZER INC-2012255069

PATIENT
  Age: 64 Year
  Sex: Male
  Weight: 61.68 kg

DRUGS (3)
  1. SOLU-MEDROL [Suspect]
     Indication: CHRONIC OBSTRUCTIVE PULMONARY DISEASE
     Dosage: 125 MG, SINGLE DOSE
     Dates: start: 20121012
  2. SOLU-MEDROL [Suspect]
     Indication: BRONCHITIS
  3. PREDNISONE [Concomitant]
     Indication: BRONCHITIS
     Dosage: 20 MG, 3X/DAY

REACTIONS (5)
  - Pain [Unknown]
  - Muscle contractions involuntary [Unknown]
  - Hyperhidrosis [Unknown]
  - Burning sensation [Unknown]
  - Injection site discomfort [Unknown]
